FAERS Safety Report 7322506-8 (Version None)
Quarter: 2011Q1

REPORT INFORMATION
  Report Type: 
  Country: None (occurrence: None)
  Receive Date: 20110301
  Receipt Date: 20110211
  Transmission Date: 20110831
  Serious: Yes (Hospitalization, Other)
  Sender: FDA-Public Use
  Company Number: US-BAYER-201036471NA

PATIENT
  Sex: Female

DRUGS (7)
  1. YASMIN [Suspect]
     Indication: PRODUCT USED FOR UNKNOWN INDICATION
     Dosage: UNK UNK, QD
     Route: 046
     Dates: end: 20070920
  2. DILAUDID [Concomitant]
     Indication: PAIN
  3. DILAUDID [Concomitant]
     Indication: HEADACHE
  4. ADVIL LIQUI-GELS [Concomitant]
  5. ZOFRAN [Concomitant]
     Indication: NAUSEA
  6. CLARITIN [Concomitant]
  7. DILAUDID [Concomitant]

REACTIONS (16)
  - PULMONARY EMBOLISM [None]
  - JOINT SWELLING [None]
  - ABDOMINAL PAIN UPPER [None]
  - MENTAL DISORDER [None]
  - RENAL FAILURE [None]
  - URINE ANALYSIS ABNORMAL [None]
  - CHEST DISCOMFORT [None]
  - MUSCULOSKELETAL DISCOMFORT [None]
  - OEDEMA PERIPHERAL [None]
  - RENAL TUBULAR NECROSIS [None]
  - PROTEINURIA [None]
  - HYPOALBUMINAEMIA [None]
  - OEDEMA [None]
  - CHROMATURIA [None]
  - NEPHROTIC SYNDROME [None]
  - DYSPNOEA [None]
